FAERS Safety Report 5848361-0 (Version None)
Quarter: 2008Q3

REPORT INFORMATION
  Report Type: 
  Country: None (occurrence: None)
  Receive Date: 20080815
  Receipt Date: 20080815
  Transmission Date: 20090109
  Serious: No
  Sender: FDA-Public Use
  Company Number: None

PATIENT
  Age: 19 Year
  Sex: Female
  Weight: 61.2356 kg

DRUGS (1)
  1. MIRENA [Suspect]

REACTIONS (4)
  - DEVICE BREAKAGE [None]
  - DIZZINESS [None]
  - NAUSEA [None]
  - SYNCOPE [None]
